FAERS Safety Report 4457028-5 (Version None)
Quarter: 2004Q3

REPORT INFORMATION
  Report Type: 
  Country: None (occurrence: None)
  Receive Date: 20040923
  Receipt Date: 20040920
  Transmission Date: 20050211
  Serious: Yes (Death)
  Sender: FDA-Public Use
  Company Number: FR-GLAXOSMITHKLINE-B0345881A

PATIENT
  Age: 4 Month
  Sex: Female

DRUGS (4)
  1. CLAMOXYL [Suspect]
     Indication: INFECTION
     Route: 042
     Dates: start: 20000101
  2. POTASSIUM CHLORIDE [Suspect]
     Route: 042
     Dates: start: 20000101
  3. ROCEPHIN [Concomitant]
     Indication: INFECTION
     Route: 042
     Dates: start: 20000101, end: 20000101
  4. AMIKACIN [Concomitant]
     Indication: INFECTION
     Route: 042
     Dates: start: 20000101, end: 20000101

REACTIONS (4)
  - CYANOSIS [None]
  - MEDICATION ERROR [None]
  - PALLOR [None]
  - SUDDEN DEATH [None]
